FAERS Safety Report 12185379 (Version 1)
Quarter: 2016Q1

REPORT INFORMATION
  Report Type: Spontaneous
  Country: US (occurrence: US)
  Receive Date: 20160316
  Receipt Date: 20160316
  Transmission Date: 20160526
  Serious: Yes (Hospitalization)
  Sender: FDA-Public Use
  Company Number: US-MYLANLABS-2016M1011066

PATIENT

DRUGS (3)
  1. CLOZAPINE. [Suspect]
     Active Substance: CLOZAPINE
     Indication: PRODUCT USED FOR UNKNOWN INDICATION
     Route: 065
  2. BENZODIAZEPINE DERIVATIVES [Suspect]
     Active Substance: BENZODIAZEPINE
     Indication: PRODUCT USED FOR UNKNOWN INDICATION
  3. METHADONE [Suspect]
     Active Substance: METHADONE HYDROCHLORIDE
     Indication: PRODUCT USED FOR UNKNOWN INDICATION
     Route: 065

REACTIONS (12)
  - Hypotonia [Unknown]
  - Dry mouth [Recovering/Resolving]
  - Overdose [Recovering/Resolving]
  - Coma [Recovering/Resolving]
  - Infrequent bowel movements [Unknown]
  - Respiratory failure [Unknown]
  - Delirium [Unknown]
  - Agitation [Unknown]
  - Pyrexia [Unknown]
  - Sinus tachycardia [Recovered/Resolved]
  - Miosis [Unknown]
  - Dry skin [Unknown]
